FAERS Safety Report 12738541 (Version 1)
Quarter: 2016Q3

REPORT INFORMATION
  Report Type: Spontaneous
  Country: US (occurrence: US)
  Receive Date: 20160913
  Receipt Date: 20160913
  Transmission Date: 20161109
  Serious: No
  Sender: FDA-Public Use
  Company Number: US-PFIZER INC-2016426452

PATIENT
  Age: 69 Year
  Sex: Male
  Weight: 91 kg

DRUGS (6)
  1. TIKOSYN [Concomitant]
     Active Substance: DOFETILIDE
     Indication: ARRHYTHMIA
     Dosage: UNK UNK, 2X/DAY, 500 UNKNOWN UNITS
  2. TIKOSYN [Concomitant]
     Active Substance: DOFETILIDE
     Dosage: 250 MG, 2X/DAY
  3. PRADAXA [Concomitant]
     Active Substance: DABIGATRAN ETEXILATE MESYLATE
     Indication: COAGULOPATHY
     Dosage: UNK
  4. POTASSIUM [Concomitant]
     Active Substance: POTASSIUM
     Dosage: 200 MG, DAILY, UP TO 200MG PER DAY
  5. FUROSEMIDE. [Suspect]
     Active Substance: FUROSEMIDE
     Indication: FLUID RETENTION
     Dosage: 120 MG, DAILY, MINIMUM OF 120MG A DAY
  6. POTASSIUM [Concomitant]
     Active Substance: POTASSIUM
     Dosage: 160 MG, DAILY

REACTIONS (1)
  - Drug effect decreased [Unknown]
